FAERS Safety Report 8520588-9 (Version None)
Quarter: 2012Q3

REPORT INFORMATION
  Report Type: 
  Country: None (occurrence: None)
  Receive Date: 20120719
  Receipt Date: 20120711
  Transmission Date: 20120928
  Serious: Yes (Hospitalization, Other)
  Sender: FDA-Public Use
  Company Number: BR-PFIZER INC-2012167594

PATIENT
  Age: 60 Year
  Sex: Female

DRUGS (9)
  1. CALCIUM CARBONATE [Concomitant]
     Indication: PAIN
     Dosage: EVERY 8 HOURS
     Dates: start: 20100210
  2. TIMOLOL MALEATE [Concomitant]
     Indication: GLAUCOMA
     Dosage: ONE DROP IN EACH EYE, TWICE DAILY
     Dates: start: 19860101
  3. XALATAN [Suspect]
     Indication: GLAUCOMA
     Dosage: 3 UG (2 DROPS) 1X/DAY
     Route: 047
     Dates: start: 19910101
  4. SIMVASTATIN [Concomitant]
     Indication: BLOOD CHOLESTEROL INCREASED
     Dosage: 40 MG, 1X/DAY
  5. OMEPRAZOLE [Concomitant]
     Indication: GASTRIC DISORDER
     Dosage: ONE TABLET DAILY
     Dates: start: 19810101
  6. TORAGESIC [Concomitant]
     Indication: PAIN
     Dosage: EVERY 8 HOURS
     Dates: start: 20100210
  7. INDAPAMIDE [Concomitant]
     Indication: CALCIUM DEFICIENCY
     Dosage: ONE TABLET DAILY
     Dates: start: 20040101
  8. LYRICA [Suspect]
     Dosage: UNK
  9. CLONAZEPAM [Concomitant]
     Indication: SLEEP DISORDER
     Dosage: A HALF OF TABLET DAILY
     Dates: start: 20100210

REACTIONS (7)
  - NERVE ROOT COMPRESSION [None]
  - OSTEOPENIA [None]
  - HYPOAESTHESIA [None]
  - CERVICAL VERTEBRAL FRACTURE [None]
  - PAIN [None]
  - OSTEOARTHRITIS [None]
  - INTERVERTEBRAL DISC PROTRUSION [None]
